FAERS Safety Report 4987002-1 (Version None)
Quarter: 2006Q2

REPORT INFORMATION
  Report Type: 
  Country: None (occurrence: None)
  Receive Date: 20060427
  Receipt Date: 20060427
  Transmission Date: 20061013
  Serious: Yes (Hospitalization)
  Sender: FDA-Public Use
  Company Number: None

PATIENT
  Age: 68 Year
  Sex: Male

DRUGS (6)
  1. VELCADE [Suspect]
     Indication: DIFFUSE LARGE B-CELL LYMPHOMA
     Dosage: 1.3 MG/M2, DAY 1 + 4 OF 21 DAY CYCLE
     Route: 041
  2. RITUXIMAB [Suspect]
     Indication: DIFFUSE LARGE B-CELL LYMPHOMA
     Dosage: R-CHOP EVERY 21 DAYS X 6 ; DAY 1 OF 21 DAY CYCLE
  3. CYCLOPHOSPHAMIDE [Suspect]
     Indication: DIFFUSE LARGE B-CELL LYMPHOMA
     Dosage: R-CHOP EVERY 21 DAYS X6; DAY 1 OF 21 DAY CYCLE
  4. DOXORUBICIN [Suspect]
     Indication: DIFFUSE LARGE B-CELL LYMPHOMA
     Dosage: R-CHOP, EVERY 21 DAYS X6; DAY 1 OF 21 DAY CYCLE
  5. VINCRISTINE [Suspect]
     Indication: DIFFUSE LARGE B-CELL LYMPHOMA
     Dosage: R-CHOP EVERY 21 DAYS X6; DAY 1 OF 21 DAY CYCLE
  6. PREDNISONE TAB [Suspect]
     Indication: DIFFUSE LARGE B-CELL LYMPHOMA
     Dosage: R-CHOP EVERY 21 DAYS X6; DAY 1 OF 21 DAY CYCLE

REACTIONS (3)
  - PNEUMONIA [None]
  - SPUTUM CULTURE POSITIVE [None]
  - STAPHYLOCOCCAL INFECTION [None]
